FAERS Safety Report 20720560 (Version 7)
Quarter: 2022Q2

REPORT INFORMATION
  Report Type: Report from Study
  Country: ES (occurrence: ES)
  Receive Date: 20220418
  Receipt Date: 20220601
  Transmission Date: 20220721
  Serious: Yes (Hospitalization, Other)
  Sender: FDA-Public Use
  Company Number: ES-ABBVIE-22K-144-4360276-00

PATIENT
  Sex: Male
  Weight: 80 kg

DRUGS (4)
  1. CARBIDOPA\LEVODOPA [Suspect]
     Active Substance: CARBIDOPA\LEVODOPA
     Indication: Parkinson^s disease
     Route: 050
     Dates: start: 20120628, end: 20220420
  2. CARBIDOPA\LEVODOPA [Suspect]
     Active Substance: CARBIDOPA\LEVODOPA
     Dosage: CONTINUOUS DOSE 3.7 ML/H
     Route: 050
     Dates: start: 20220421, end: 202205
  3. CARBIDOPA\LEVODOPA [Suspect]
     Active Substance: CARBIDOPA\LEVODOPA
     Dosage: CONTINUOUS DOSE 2.5 ML/H
     Route: 050
     Dates: start: 20220513, end: 202205
  4. CARBIDOPA\LEVODOPA [Suspect]
     Active Substance: CARBIDOPA\LEVODOPA
     Dosage: CONTINUOUS DOSE INCREASED TO 2.9ML/H
     Route: 050
     Dates: start: 202205

REACTIONS (17)
  - Renal disorder [Not Recovered/Not Resolved]
  - Hyperglycaemia [Recovered/Resolved]
  - Malaise [Not Recovered/Not Resolved]
  - Hypophagia [Not Recovered/Not Resolved]
  - Dehydration [Recovered/Resolved]
  - Fluid intake reduced [Not Recovered/Not Resolved]
  - Pneumonia aspiration [Recovered/Resolved]
  - Renal failure [Unknown]
  - Incorrect dose administered [Unknown]
  - Movement disorder [Not Recovered/Not Resolved]
  - Choking [Unknown]
  - Wrong technique in product usage process [Unknown]
  - Musculoskeletal stiffness [Unknown]
  - Decubitus ulcer [Unknown]
  - Agitation [Unknown]
  - Dyskinesia [Recovered/Resolved]
  - Parkinson^s disease [Not Recovered/Not Resolved]

NARRATIVE: CASE EVENT DATE: 20220101
